FAERS Safety Report 5661297-3 (Version None)
Quarter: 2008Q1

REPORT INFORMATION
  Report Type: 
  Country: None (occurrence: None)
  Receive Date: 20080312
  Receipt Date: 20080227
  Transmission Date: 20080703
  Serious: Yes (Other)
  Sender: FDA-Public Use
  Company Number: US-BAYER-200813990NA

PATIENT
  Age: 52 Year
  Sex: Female

DRUGS (2)
  1. BETASERON [Suspect]
     Indication: RELAPSING-REMITTING MULTIPLE SCLEROSIS
     Dosage: TOTAL DAILY DOSE: 2 MIU
     Route: 058
     Dates: start: 20080115, end: 20080206
  2. PAIN MEDICATION [Suspect]

REACTIONS (11)
  - ABDOMINAL PAIN [None]
  - GALLBLADDER DISORDER [None]
  - INSOMNIA [None]
  - NAUSEA [None]
  - ORAL INTAKE REDUCED [None]
  - PROCEDURAL PAIN [None]
  - PSYCHOMOTOR HYPERACTIVITY [None]
  - SOMNOLENCE [None]
  - TENSION HEADACHE [None]
  - VOMITING [None]
  - WEIGHT DECREASED [None]
